FAERS Safety Report 22314609 (Version 1)
Quarter: 2023Q2

REPORT INFORMATION
  Report Type: Spontaneous
  Country: US (occurrence: None)
  Receive Date: 20230512
  Receipt Date: 20230512
  Transmission Date: 20230721
  Serious: No
  Sender: FDA-Public Use
  Company Number: None

PATIENT

DRUGS (3)
  1. ENTRESTO [Suspect]
     Active Substance: SACUBITRIL\VALSARTAN
  2. ENTRESTO [Suspect]
     Active Substance: SACUBITRIL\VALSARTAN
  3. LISINOPRIL [Suspect]
     Active Substance: LISINOPRIL

REACTIONS (2)
  - Product prescribing issue [None]
  - Disease risk factor [None]
